FAERS Safety Report 8954722 (Version 1)
Quarter: 2012Q4

REPORT INFORMATION
  Report Type: 
  Country: GB (occurrence: GB)
  Receive Date: 20121210
  Receipt Date: 20121210
  Transmission Date: 20130627
  Serious: Yes (Other)
  Sender: FDA-Public Use
  Company Number: GB-ROXANE LABORATORIES, INC.-2012-BI-02462GD

PATIENT
  Age: 78 Year
  Sex: Female

DRUGS (6)
  1. MORPHINE [Suspect]
     Indication: PAIN
  2. OXYCONTIN [Suspect]
     Indication: PAIN
  3. OXYNORM [Suspect]
     Indication: PAIN
  4. AMOXICILLIN\CLAVULANATE POTASSIUM [Concomitant]
     Route: 042
  5. FLUCLOXACILLIN [Concomitant]
     Dosage: 8 g
     Route: 042
  6. RIFAMPICIN [Concomitant]

REACTIONS (4)
  - Urinary retention [Not Recovered/Not Resolved]
  - Constipation [Unknown]
  - Back pain [Unknown]
  - Faecal incontinence [Recovered/Resolved]
